FAERS Safety Report 5218928-1 (Version None)
Quarter: 2007Q1

REPORT INFORMATION
  Report Type: 
  Country: None (occurrence: None)
  Receive Date: 20070125
  Receipt Date: 20070118
  Transmission Date: 20070707
  Serious: Yes (Hospitalization)
  Sender: FDA-Public Use
  Company Number: DE-AVENTIS-200710159DE

PATIENT
  Age: 64 Year
  Sex: Male
  Weight: 84 kg

DRUGS (10)
  1. CODE UNBROKEN [Suspect]
     Indication: PROPHYLAXIS
     Route: 048
     Dates: start: 20060512, end: 20060516
  2. DOCETAXEL [Suspect]
     Indication: BRONCHIAL CARCINOMA
     Route: 042
     Dates: start: 20060509, end: 20060509
  3. CARBOPLATIN [Suspect]
     Indication: BRONCHIAL CARCINOMA
     Route: 042
     Dates: start: 20060509, end: 20060509
  4. AMARYL [Concomitant]
     Indication: DIABETES MELLITUS
     Route: 048
     Dates: start: 20060410
  5. BISOPROLOL FUMARATE [Concomitant]
     Indication: HYPERTENSION
     Route: 048
     Dates: start: 20060410
  6. DIOVANE [Concomitant]
     Indication: HYPERTENSION
     Route: 048
     Dates: start: 20060410
  7. PANTOZOL                           /01263202/ [Concomitant]
     Indication: GASTRITIS
     Route: 048
     Dates: start: 20060410
  8. METHIZOL [Concomitant]
     Indication: HYPERTHYROIDISM
     Route: 048
     Dates: start: 20060410
  9. LEVEMIR [Concomitant]
     Indication: DIABETES MELLITUS
     Route: 058
     Dates: start: 20060410
  10. DEXAMETHASONE [Concomitant]
     Dates: start: 20060501, end: 20060501

REACTIONS (5)
  - DIABETIC GANGRENE [None]
  - GANGRENE [None]
  - HYPERGLYCAEMIA [None]
  - LEUKOPENIA [None]
  - TOE AMPUTATION [None]
